FAERS Safety Report 9820288 (Version 1)
Quarter: 2013Q4

REPORT INFORMATION
  Report Type: Spontaneous
  Country: DE (occurrence: None)
  Receive Date: 20131024
  Receipt Date: 20131024
  Transmission Date: 20140711
  Serious: Yes (Hospitalization, Congenital Anomaly, Other)
  Sender: FDA-Public Use
  Company Number: E2B_00001290

PATIENT
  Age: 1 Day
  Sex: Female
  Weight: 3.71 kg

DRUGS (5)
  1. LAMOTRIGIN [Suspect]
     Indication: BIPOLAR DISORDER
     Route: 064
     Dates: start: 20070513, end: 20080225
  2. QUETIAPINE [Suspect]
     Indication: BIPOLAR DISORDER
     Route: 064
  3. LITHIUM [Suspect]
     Indication: BIPOLAR DISORDER
     Route: 064
     Dates: start: 20070513, end: 20080225
  4. METOPROLOL (UNKNOWN) (METOPROLOL) [Concomitant]
  5. AUGMENTIN (UNKNOWN) (AMOXICILLIN, CLAVULANIC ACID) [Concomitant]

REACTIONS (8)
  - Coarctation of the aorta [None]
  - Congenital aortic valve stenosis [None]
  - Hypotonia [None]
  - Hypotension [None]
  - Neonatal respiratory distress syndrome [None]
  - Bradycardia neonatal [None]
  - Atrial septal defect [None]
  - Foetal exposure during pregnancy [None]
